FAERS Safety Report 18197443 (Version 1)
Quarter: 2020Q3

REPORT INFORMATION
  Report Type: Spontaneous
  Country: TR (occurrence: TR)
  Receive Date: 20200826
  Receipt Date: 20200826
  Transmission Date: 20201103
  Serious: Yes (Other)
  Sender: FDA-Public Use
  Company Number: TR-BAYER-2020-058224

PATIENT
  Age: 26 Year
  Sex: Female
  Weight: 61 kg

DRUGS (2)
  1. YAZZ 24+4 [Suspect]
     Active Substance: DROSPIRENONE\ETHINYL ESTRADIOL
     Indication: CONTRACEPTION
     Dosage: 1 DF, QD
     Route: 048
     Dates: start: 20200321, end: 202004
  2. YASMIN [Suspect]
     Active Substance: DROSPIRENONE\ETHINYL ESTRADIOL
     Indication: CONTRACEPTION
     Dosage: 1 DF, QD
     Route: 048
     Dates: start: 201909, end: 201911

REACTIONS (11)
  - Weight increased [Recovered/Resolved]
  - Pregnancy on oral contraceptive [Recovered/Resolved]
  - Oedema peripheral [Recovered/Resolved]
  - Vaginal haemorrhage [Recovered/Resolved]
  - Drug ineffective [None]
  - Amenorrhoea [Recovered/Resolved]
  - Haemorrhage in pregnancy [None]
  - Weight increased [Recovered/Resolved]
  - Swelling [Recovered/Resolved]
  - Pain [Recovered/Resolved]
  - Pain in extremity [Recovered/Resolved]

NARRATIVE: CASE EVENT DATE: 2019
